FAERS Safety Report 7964442-X (Version None)
Quarter: 2011Q4

REPORT INFORMATION
  Report Type: 
  Country: None (occurrence: None)
  Receive Date: 20111208
  Receipt Date: 20111125
  Transmission Date: 20120403
  Serious: Yes (Other)
  Sender: FDA-Public Use
  Company Number: BR-JNJFOC-20111111522

PATIENT
  Age: 56 Year
  Sex: Male
  Weight: 74 kg

DRUGS (8)
  1. AMLODIPINE [Concomitant]
     Indication: HYPERTENSION
     Route: 065
     Dates: start: 20090101
  2. REMICADE [Suspect]
     Indication: CROHN'S DISEASE
     Route: 042
     Dates: start: 20110920
  3. AZATHIOPRINE [Concomitant]
     Indication: CROHN'S DISEASE
     Route: 048
  4. VITAMIN B-12 [Concomitant]
     Indication: CROHN'S DISEASE
  5. REMICADE [Suspect]
     Route: 042
     Dates: start: 20110902
  6. LOSARTAN POTASSIUM [Concomitant]
     Indication: HYPERTENSION
     Dates: start: 20090101
  7. ATENOLOL [Concomitant]
     Indication: HYPERTENSION
     Route: 065
     Dates: start: 20090101
  8. REMICADE [Suspect]
     Route: 042
     Dates: start: 20111104

REACTIONS (9)
  - DYSPHONIA [None]
  - DECREASED APPETITE [None]
  - ASTHENIA [None]
  - NAUSEA [None]
  - PYREXIA [None]
  - HYPERHIDROSIS [None]
  - WEIGHT DECREASED [None]
  - DYSGEUSIA [None]
  - FATIGUE [None]
